FAERS Safety Report 8889890 (Version 1)
Quarter: 2012Q4

REPORT INFORMATION
  Report Type: 
  Country: JP (occurrence: JP)
  Receive Date: 20121107
  Receipt Date: 20121107
  Transmission Date: 20130627
  Serious: Yes (Hospitalization, Other)
  Sender: FDA-Public Use
  Company Number: JP-009507513-1208JPN004924

PATIENT
  Age: 22 Year
  Sex: Female
  Weight: 48 kg

DRUGS (5)
  1. ESLAX [Suspect]
     Indication: NEUROMUSCULAR BLOCKING THERAPY
     Dosage: unknown
     Route: 042
  2. PROPOFOL [Concomitant]
     Indication: INDUCTION OF ANAESTHESIA
     Dosage: unknown
     Route: 042
  3. SUGAMMADEX SODIUM [Concomitant]
     Dosage: unknown
  4. NICARDIPINE HYDROCHLORIDE [Concomitant]
     Indication: HYPERTENSION
     Dosage: unknown
  5. MAGNESIUM (UNSPECIFIED) [Concomitant]
     Indication: PROPHYLAXIS
     Dosage: unknown

REACTIONS (2)
  - Pharyngeal oedema [Recovering/Resolving]
  - Maternal exposure during pregnancy [Unknown]
